FAERS Safety Report 8576752 (Version 3)
Quarter: 2013Q4

REPORT INFORMATION
  Report Type: Spontaneous
  Country: US (occurrence: US)
  Receive Date: 20120523
  Receipt Date: 20131003
  Transmission Date: 20140711
  Serious: Yes (Other)
  Sender: FDA-Public Use
  Company Number: CHPA2012US010820

PATIENT
  Age: 86 Year
  Sex: Male

DRUGS (3)
  1. EXCEDRIN MIGRAINE [Suspect]
     Indication: MIGRAINE
     Dosage: 1 DF, PRN
     Route: 048
  2. EXCEDRIN MIGRAINE [Suspect]
     Dosage: 2 DF, PRN
     Route: 048
  3. WARFARIN [Concomitant]
     Indication: CARDIAC DISORDER
     Dosage: UNK, UNK

REACTIONS (2)
  - Thyroid disorder [Not Recovered/Not Resolved]
  - Underdose [Unknown]
